FAERS Safety Report 9198035 (Version 1)
Quarter: 2013Q1

REPORT INFORMATION
  Report Type: Spontaneous
  Country: NZ (occurrence: NZ)
  Receive Date: 20130328
  Receipt Date: 20130328
  Transmission Date: 20140127
  Serious: Yes (Other)
  Sender: FDA-Public Use
  Company Number: NZ-B.I. PHARMACEUTICALS,INC./RIDGEFIELD-2013-AU-00395AU

PATIENT
  Sex: Female

DRUGS (2)
  1. PRADAXA [Suspect]
     Dosage: 300 MG
  2. METOPROLOL [Concomitant]

REACTIONS (2)
  - Skin cancer [Unknown]
  - Graft haemorrhage [Not Recovered/Not Resolved]
